APPROVED DRUG PRODUCT: STAVUDINE
Active Ingredient: STAVUDINE
Strength: 1MG/ML
Dosage Form/Route: FOR SOLUTION;ORAL
Application: A078030 | Product #001
Applicant: CIPLA LTD
Approved: Mar 20, 2009 | RLD: No | RS: No | Type: DISCN